FAERS Safety Report 4597891-0 (Version None)
Quarter: 2005Q1

REPORT INFORMATION
  Report Type: 
  Country: None (occurrence: None)
  Receive Date: 20050125
  Receipt Date: 20040910
  Transmission Date: 20050727
  Serious: No
  Sender: FDA-Public Use
  Company Number: USA040978061

PATIENT
  Age: 69 Year
  Sex: Female

DRUGS (1)
  1. FORTEO [Suspect]
     Indication: OSTEOPOROSIS
     Dates: start: 20040901, end: 20040901

REACTIONS (8)
  - ANXIETY [None]
  - ASTHENIA [None]
  - FEELING ABNORMAL [None]
  - HEADACHE [None]
  - NAUSEA [None]
  - NERVOUSNESS [None]
  - PAIN IN EXTREMITY [None]
  - STOMACH DISCOMFORT [None]
